FAERS Safety Report 24900098 (Version 1)
Quarter: 2025Q1

REPORT INFORMATION
  Report Type: Spontaneous
  Country: US (occurrence: None)
  Receive Date: 20250129
  Receipt Date: 20250129
  Transmission Date: 20250409
  Serious: Yes (Other)
  Sender: FDA-CTU
  Company Number: None

PATIENT
  Age: 55 Year
  Sex: Female
  Weight: 58.5 kg

DRUGS (4)
  1. PAXLOVID [Suspect]
     Active Substance: NIRMATRELVIR\RITONAVIR
     Indication: COVID-19 treatment
  2. CEQUA [Concomitant]
     Active Substance: CYCLOSPORINE
  3. VITAMINS [Concomitant]
     Active Substance: VITAMINS
  4. DIETARY SUPPLEMENT [Concomitant]
     Active Substance: DIETARY SUPPLEMENT

REACTIONS (5)
  - Rash pruritic [None]
  - Urticaria [None]
  - Rash [None]
  - Taste disorder [None]
  - Therapy cessation [None]

NARRATIVE: CASE EVENT DATE: 20250119
